FAERS Safety Report 8471378-7 (Version None)
Quarter: 2012Q2

REPORT INFORMATION
  Report Type: 
  Country: None (occurrence: None)
  Receive Date: 20120627
  Receipt Date: 20120626
  Transmission Date: 20120825
  Serious: Yes (Other)
  Sender: FDA-Public Use
  Company Number: IE-ROCHE-1081863

PATIENT
  Age: 16 Year
  Sex: Male
  Weight: 75 kg

DRUGS (3)
  1. ISOTRETINOIN [Suspect]
     Dates: start: 20080101
  2. ISOTRETINOIN [Suspect]
     Dates: end: 20070901
  3. ISOTRETINOIN [Suspect]
     Indication: ACNE
     Dates: start: 20070301

REACTIONS (2)
  - ERECTILE DYSFUNCTION [None]
  - LIBIDO DECREASED [None]
